FAERS Safety Report 4605717-1 (Version None)
Quarter: 2005Q2

REPORT INFORMATION
  Report Type: 
  Country: None (occurrence: None)
  Receive Date: 20050214
  Receipt Date: 20041027
  Transmission Date: 20051028
  Serious: No
  Sender: FDA-Public Use
  Company Number: USA041082351

PATIENT
  Age: 62 Year
  Sex: Male
  Weight: 84 kg

DRUGS (2)
  1. CIALIS [Suspect]
     Indication: BLOOD TESTOSTERONE DECREASED
     Dosage: 20 MG/1
     Dates: start: 20041024
  2. TESTOSTERONE [Concomitant]

REACTIONS (1)
  - BACK PAIN [None]
